FAERS Safety Report 16739900 (Version 1)
Quarter: 2019Q3

REPORT INFORMATION
  Report Type: Spontaneous
  Country: US (occurrence: US)
  Receive Date: 20190826
  Receipt Date: 20190826
  Transmission Date: 20191005
  Serious: Yes (Hospitalization)
  Sender: FDA-Public Use
  Company Number: US-SCIEGEN PHARMACEUTICALS INC-2019SCILIT00242

PATIENT
  Age: 44 Year
  Sex: Female

DRUGS (11)
  1. HYDROCODONE/ACETAMINOPHEN [Concomitant]
     Active Substance: ACETAMINOPHEN\HYDROCODONE
  2. CARVEDILOL. [Interacting]
     Active Substance: CARVEDILOL
  3. POLYETHYLENE GLYCOL [Concomitant]
     Active Substance: POLYETHYLENE GLYCOLS
  4. CYCLOBENZAPRINE. [Concomitant]
     Active Substance: CYCLOBENZAPRINE
  5. DOCUSATE [Concomitant]
     Active Substance: DOCUSATE
  6. OXYCODONE/ACETAMINOPHEN [Suspect]
     Active Substance: ACETAMINOPHEN\OXYCODONE HYDROCHLORIDE
  7. SPIRONOLACTONE. [Interacting]
     Active Substance: SPIRONOLACTONE
  8. GABAPENTIN TABLETS [Suspect]
     Active Substance: GABAPENTIN
  9. ONDANSETRON [Concomitant]
     Active Substance: ONDANSETRON
  10. DIAZEPAM. [Concomitant]
     Active Substance: DIAZEPAM
  11. LOSARTAN. [Interacting]
     Active Substance: LOSARTAN

REACTIONS (3)
  - Mitral valve incompetence [Recovered/Resolved]
  - Cardiomyopathy [Recovered/Resolved]
  - Product use in unapproved indication [None]
